FAERS Safety Report 9103886 (Version 1)
Quarter: 2013Q1

REPORT INFORMATION
  Report Type: Spontaneous
  Country: US (occurrence: None)
  Receive Date: 20130125
  Receipt Date: 20130125
  Transmission Date: 20140127
  Serious: Yes (Life-Threatening, Hospitalization, Congenital Anomaly)
  Sender: FDA-Public Use
  Company Number: DAV-AE-PTU-13-02

PATIENT
  Sex: 0

DRUGS (1)
  1. PROPYLTHIOURACIL [Suspect]
     Indication: EXPOSURE DURING PREGNANCY

REACTIONS (4)
  - Aplasia cutis congenita [None]
  - Exomphalos [None]
  - Maternal drugs affecting foetus [None]
  - Oesophageal atresia [None]
